FAERS Safety Report 4432187-9 (Version None)
Quarter: 2004Q3

REPORT INFORMATION
  Report Type: 
  Country: None (occurrence: None)
  Receive Date: 20040820
  Receipt Date: 20040810
  Transmission Date: 20050211
  Serious: Yes (Hospitalization)
  Sender: FDA-Public Use
  Company Number: STA-AE-04-MTX-362

PATIENT
  Age: 60 Year
  Sex: Male

DRUGS (10)
  1. METHOTREXATE [Suspect]
     Indication: RHEUMATOID ARTHRITIS
     Dosage: 15 MG 1X PER 1 WK ORAL
     Route: 048
     Dates: start: 20020731
  2. ARAVA [Suspect]
     Indication: RHEUMATOID ARTHRITIS
     Dosage: 20 MG 1X PER 1 DAY ORAL
     Route: 048
  3. REMICADE [Suspect]
     Dosage: 180 MG 1X PER 8 WK, INTRAVENOUS
     Route: 042
     Dates: start: 20020311, end: 20040121
  4. PREDNISONE TAB [Concomitant]
  5. FOSAMAX [Concomitant]
  6. FOLIC ACID [Concomitant]
  7. FLEXICAL (AMINO ACIDS NOS/MINERALS NOS/VITAMINS NOS) [Concomitant]
  8. ALPRESS (PRAZOSIN HYDROCHLORIDE) [Concomitant]
  9. ALACAND (CANDESARTAN CILEXETIL) [Concomitant]
  10. ACETAMINOPHEN [Concomitant]

REACTIONS (1)
  - HODGKIN'S DISEASE [None]
